FAERS Safety Report 4787422-4 (Version None)
Quarter: 2005Q4

REPORT INFORMATION
  Report Type: 
  Country: None (occurrence: None)
  Receive Date: 20051003
  Receipt Date: 20050923
  Transmission Date: 20060501
  Serious: Yes (Hospitalization)
  Sender: FDA-Public Use
  Company Number: PHNR2005AU01445

PATIENT
  Age: 94 Year
  Sex: Male

DRUGS (8)
  1. TRANSIDERM-NITRO (GLYCERYL TRINITRATE) TRANS-THERAPEUTIC SYSTEM [Suspect]
     Indication: MYOCARDIAL ISCHAEMIA
     Dosage: 25 MG, QD, TRANSDERMAL
     Route: 062
     Dates: start: 20041120, end: 20041123
  2. ATENOLOL [Suspect]
     Dosage: 75 MG, QD, ORAL
     Route: 048
     Dates: end: 20041121
  3. NIFEDIPINE [Suspect]
     Dosage: 20 MG, QD, ORAL
     Route: 048
     Dates: end: 20041121
  4. CEFTRIAXONE (CEFTRIAXONE) INJECTION [Suspect]
     Dosage: 1 G, QD, INTRAVENOUS
     Route: 042
     Dates: start: 20041120, end: 20041121
  5. ROXITHROMYCIN (ROXITHROMYCIN) [Suspect]
     Dosage: 300 MG, QD, ORAL
     Route: 048
     Dates: start: 20041120, end: 20041130
  6. FRUSEMIDE (FUROSEMIDE) INJECTION [Suspect]
     Indication: LEFT VENTRICULAR FAILURE
     Dosage: 40 MG, QD, INTRAVENOUS
     Route: 042
     Dates: start: 20041120, end: 20041123
  7. PRAZOSIN HYDROCHLORIDE (PRAZOSIN HYDROCHLORIDE) TABLET [Suspect]
     Indication: HYPERTENSION
     Dosage: 6 MG, QD, ORAL
     Route: 048
     Dates: end: 20041121
  8. IMDUR [Suspect]
     Indication: MYOCARDIAL ISCHAEMIA
     Dosage: 120 MG, QD, ORAL
     Route: 048
     Dates: end: 20041121

REACTIONS (3)
  - CAMPYLOBACTER INTESTINAL INFECTION [None]
  - DIARRHOEA [None]
  - FAECES DISCOLOURED [None]
